FAERS Safety Report 24064971 (Version 1)
Quarter: 2024Q3

REPORT INFORMATION
  Report Type: Spontaneous
  Country: GB (occurrence: GB)
  Receive Date: 20240709
  Receipt Date: 20240709
  Transmission Date: 20241016
  Serious: Yes (Life-Threatening, Hospitalization, Disabling, Other)
  Sender: MYLAN
  Company Number: None

PATIENT
  Age: 47 Year
  Sex: Male
  Weight: 137 kg

DRUGS (15)
  1. CIPROFLOXACIN [Suspect]
     Active Substance: CIPROFLOXACIN
     Indication: Oropharyngeal pain
     Dosage: 400 MILLIGRAM, UNK
     Route: 065
     Dates: start: 20240414, end: 20240414
  2. BENZYDAMINE [Suspect]
     Active Substance: BENZYDAMINE
     Indication: Oropharyngeal pain
     Dosage: UNK (6 SPRAYS EVERY 3 HRS PRN)
     Route: 065
     Dates: start: 20240414, end: 20240414
  3. BEZAFIBRATE [Concomitant]
     Active Substance: BEZAFIBRATE
     Indication: Adverse drug reaction
     Dosage: UNK
     Route: 065
  4. BISOPROLOL [Concomitant]
     Active Substance: BISOPROLOL\BISOPROLOL FUMARATE
     Indication: Adverse drug reaction
     Dosage: UNK
     Route: 065
  5. DEXAMETHASONE [Concomitant]
     Active Substance: DEXAMETHASONE
     Dosage: UNK
     Route: 065
     Dates: start: 20240414, end: 20240416
  6. EMPAGLIFLOZIN [Concomitant]
     Active Substance: EMPAGLIFLOZIN
     Indication: Adverse drug reaction
     Dosage: UNK
     Route: 065
  7. EZETIMIBE [Concomitant]
     Active Substance: EZETIMIBE
     Indication: Adverse drug reaction
     Dosage: UNK
     Route: 065
  8. FENTANYL [Concomitant]
     Active Substance: FENTANYL\FENTANYL CITRATE
     Dosage: UNK
     Route: 065
     Dates: start: 20240414, end: 20240414
  9. METOCLOPRAMIDE [Concomitant]
     Active Substance: METOCLOPRAMIDE
     Dosage: UNK
     Route: 065
     Dates: start: 20240414, end: 20240428
  10. OMEPRAZOLE [Concomitant]
     Active Substance: OMEPRAZOLE
     Dosage: UNK
     Route: 065
  11. ROCURONIUM [Concomitant]
     Active Substance: ROCURONIUM BROMIDE
     Dosage: UNK
     Route: 065
  12. ASCORBIC ACID\VITAMIN B COMPLEX [Concomitant]
     Active Substance: ASCORBIC ACID\VITAMIN B COMPLEX
     Dosage: UNK
     Route: 065
  13. ALFENTANIL [Concomitant]
     Active Substance: ALFENTANIL
     Dosage: UNK
     Route: 065
  14. INSULIN HUMAN [Concomitant]
     Active Substance: INSULIN HUMAN
     Dosage: UNK
     Route: 065
  15. PROPOFOL [Concomitant]
     Active Substance: PROPOFOL
     Dosage: UNK
     Route: 065

REACTIONS (3)
  - Anaphylactic reaction [Not Recovered/Not Resolved]
  - Cardiac arrest [Unknown]
  - Hypoxia [Unknown]

NARRATIVE: CASE EVENT DATE: 20240414
